FAERS Safety Report 5771295-7 (Version None)
Quarter: 2008Q2

REPORT INFORMATION
  Report Type: 
  Country: None (occurrence: None)
  Receive Date: 20080428
  Receipt Date: 20080428
  Transmission Date: 20081010
  Serious: Yes (Disabling)
  Sender: FDA-Public Use
  Company Number: None

PATIENT
  Age: 2 Year
  Sex: Female

DRUGS (1)
  1. CHLORAPREP [Suspect]
     Indication: TYPE 2 DIABETES MELLITUS
     Dosage: TOP
     Route: 061
     Dates: start: 20080409, end: 20080409

REACTIONS (2)
  - APPLICATION SITE REACTION [None]
  - LACERATION [None]
